FAERS Safety Report 7114655-4 (Version None)
Quarter: 2010Q4

REPORT INFORMATION
  Report Type: 
  Country: None (occurrence: None)
  Receive Date: 20101122
  Receipt Date: 20101112
  Transmission Date: 20110411
  Serious: Yes (Hospitalization)
  Sender: FDA-Public Use
  Company Number: US-BIOGENIDEC-2010BI035730

PATIENT
  Age: 54 Year
  Sex: Female

DRUGS (8)
  1. TYSABRI [Suspect]
     Indication: MULTIPLE SCLEROSIS
     Route: 042
     Dates: start: 20100329
  2. NAPROXEN [Concomitant]
  3. GABAPENTIN [Concomitant]
  4. FLEXERIL [Concomitant]
  5. ERGOCALCIFEROL [Concomitant]
  6. AMPYRA [Concomitant]
  7. DETROL LA [Concomitant]
  8. VITAMIN B-12 [Concomitant]
     Route: 058

REACTIONS (5)
  - ARTHRALGIA [None]
  - INTESTINAL PERFORATION [None]
  - MULTIPLE SCLEROSIS RELAPSE [None]
  - PROCEDURAL PAIN [None]
  - VISUAL IMPAIRMENT [None]
